FAERS Safety Report 4299791-2 (Version None)
Quarter: 2004Q1

REPORT INFORMATION
  Report Type: 
  Country: None (occurrence: None)
  Receive Date: 20040219
  Receipt Date: 20040210
  Transmission Date: 20041129
  Serious: Yes (Other)
  Sender: FDA-Public Use
  Company Number: WAES 0402AUS00053

PATIENT
  Age: 68 Year
  Sex: Female

DRUGS (5)
  1. FOSAMAX [Suspect]
     Route: 048
     Dates: start: 20000101
  2. ASCORBIC ACID [Concomitant]
  3. LINSEED OIL [Concomitant]
  4. NIACIN [Suspect]
     Indication: VITAMIN SUPPLEMENTATION
     Dates: start: 20040210, end: 20040210
  5. VITAMIN B COMPLEX [Concomitant]

REACTIONS (2)
  - BREAST CANCER [None]
  - RASH GENERALISED [None]
